FAERS Safety Report 7887117 (Version 2)
Quarter: 2014Q1

REPORT INFORMATION
  Report Type: Spontaneous
  Country: US (occurrence: US)
  Receive Date: 20110406
  Receipt Date: 20140320
  Transmission Date: 20141002
  Serious: Yes (Other)
  Sender: FDA-Public Use
  Company Number: US-BAYER-2011-027324

PATIENT
  Age: 19 Year
  Sex: Female

DRUGS (16)
  1. YAZ [Suspect]
     Dosage: UNK
     Dates: start: 200801
  2. YASMIN [Suspect]
     Dosage: UNK
     Dates: start: 200801
  3. AMPHETAMINE SALTS [Concomitant]
     Dosage: 20 MG, UNK
     Dates: start: 20090926
  4. AZITHROMYCIN [Concomitant]
     Dosage: 250 MG, UNK
     Dates: start: 20090928
  5. VENTOLIN [Concomitant]
     Dosage: UNK
     Dates: start: 20091020
  6. HYDROXYZINE HCL [Concomitant]
     Dosage: 25 MG, UNK
     Dates: start: 20091020
  7. SINGULAIR [Concomitant]
     Dosage: 10 MG, EVERY EVENING
     Dates: start: 20091130
  8. WELLBUTRIN SR [Concomitant]
     Dosage: 150 MG, EVERY MORNING
     Dates: start: 20091130
  9. ZITHROMAX [Concomitant]
     Dosage: 250 MG, UNK
     Dates: start: 20091109, end: 20091130
  10. ADVAIR [Concomitant]
     Dosage: ONE INHALATION TWICE DAILY
     Dates: start: 20091130
  11. ALBUTEROL [Concomitant]
     Dosage: 2 PUFFS EVERY 4 HOURS
     Dates: start: 20091130
  12. ATARAX [Concomitant]
     Indication: ANXIETY
     Dosage: UNK
     Dates: start: 20091130
  13. BACTRIM [Concomitant]
     Dosage: 800-160 MG TABLET
     Dates: start: 20091201
  14. RANITIDINE HYDROCHLORIDE [Concomitant]
     Dosage: 150 MG, UNK
     Dates: start: 20091205
  15. OMEPRAZOLE [Concomitant]
     Dosage: UNK
     Dates: start: 20091207
  16. MIRALAX [Concomitant]
     Dosage: UNK
     Dates: start: 20091207

REACTIONS (9)
  - Cholecystectomy [None]
  - Cholecystitis chronic [None]
  - Biliary dyskinesia [None]
  - Pain [None]
  - Emotional distress [None]
  - General physical health deterioration [None]
  - Anxiety [None]
  - Injury [None]
  - Anhedonia [None]
